FAERS Safety Report 5917029-4 (Version None)
Quarter: 2008Q4

REPORT INFORMATION
  Report Type: 
  Country: None (occurrence: None)
  Receive Date: 20081009
  Receipt Date: 20081009
  Transmission Date: 20090506
  Serious: Yes (Life-Threatening)
  Sender: FDA-Public Use
  Company Number: None

PATIENT
  Sex: Male
  Weight: 77.1115 kg

DRUGS (2)
  1. GEODON [Suspect]
     Indication: PARANOIA
     Dosage: QD PO
     Route: 048
  2. GEODON [Suspect]
     Indication: PSYCHOTIC DISORDER
     Dosage: QD PO
     Route: 048

REACTIONS (3)
  - ROAD TRAFFIC ACCIDENT [None]
  - SOMNAMBULISM [None]
  - SOMNOLENCE [None]
